FAERS Safety Report 19685895 (Version 2)
Quarter: 2021Q3

REPORT INFORMATION
  Report Type: Report from Study
  Country: US (occurrence: US)
  Receive Date: 20210811
  Receipt Date: 20210820
  Transmission Date: 20211014
  Serious: Yes (Hospitalization)
  Sender: FDA-Public Use
  Company Number: US-PFIZER INC-202100986848

PATIENT
  Age: 28 Year
  Sex: Female
  Weight: 126.8 kg

DRUGS (2)
  1. AVELUMAB [Suspect]
     Active Substance: AVELUMAB
     Indication: ENDOMETRIAL CANCER METASTATIC
     Dosage: 800 MG, Q 2 WEEKS
     Route: 042
     Dates: start: 20201224, end: 20210707
  2. AXITINIB [Suspect]
     Active Substance: AXITINIB
     Indication: ENDOMETRIAL CANCER METASTATIC
     Dosage: 5 MG, TWICE DAILY
     Route: 048
     Dates: start: 20201224, end: 20210720

REACTIONS (1)
  - Pericarditis [Unknown]

NARRATIVE: CASE EVENT DATE: 20210801
